FAERS Safety Report 5265384-3 (Version None)
Quarter: 2007Q1

REPORT INFORMATION
  Report Type: 
  Country: None (occurrence: None)
  Receive Date: 20061214
  Receipt Date: 20041105
  Transmission Date: 20070707
  Serious: Yes (Other)
  Sender: FDA-Public Use
  Company Number: 2004UW22970

PATIENT
  Age: 66 Year
  Sex: Female
  Weight: 69.399 kg

DRUGS (8)
  1. PULMICORT RESPULES [Suspect]
     Indication: EMPHYSEMA
     Dosage: 0.5 MG QID IH
     Route: 055
     Dates: start: 20030101
  2. ALBUTEROL [Concomitant]
  3. ATROVENT [Concomitant]
  4. DUONEB [Concomitant]
  5. BENICAR [Concomitant]
  6. ALLEGRA [Concomitant]
  7. TRIAMTERENE [Concomitant]
  8. LEVOXYL [Concomitant]

REACTIONS (2)
  - COUGH [None]
  - MEDICATION ERROR [None]
